FAERS Safety Report 4701839-5 (Version None)
Quarter: 2005Q2

REPORT INFORMATION
  Report Type: 
  Country: None (occurrence: None)
  Receive Date: 20050627
  Receipt Date: 20050617
  Transmission Date: 20051028
  Serious: Yes (Hospitalization)
  Sender: FDA-Public Use
  Company Number: 2005US-00561

PATIENT
  Age: 72 Year
  Sex: Male

DRUGS (1)
  1. AMOXICILLIN [Suspect]
     Indication: TOOTH ABSCESS

REACTIONS (3)
  - DERMATITIS CONTACT [None]
  - DERMATITIS EXFOLIATIVE [None]
  - DRUG ERUPTION [None]
